FAERS Safety Report 11696062 (Version 1)
Quarter: 2015Q4

REPORT INFORMATION
  Report Type: Spontaneous
  Country: US (occurrence: None)
  Receive Date: 20151103
  Receipt Date: 20151103
  Transmission Date: 20160304
  Serious: Yes (Disabling)
  Sender: FDA-Public Use
  Company Number: None

PATIENT
  Age: 61 Year
  Sex: Male
  Weight: 76.2 kg

DRUGS (7)
  1. SILDENAFIL CITRATE 100MG [Suspect]
     Active Substance: SILDENAFIL CITRATE
     Indication: RADIOTHERAPY
     Dosage: 1 PILL
     Route: 048
     Dates: start: 2007, end: 20150615
  2. HYROCODONE [Concomitant]
  3. ZOLPEIM [Concomitant]
  4. TORSEMIDE. [Concomitant]
     Active Substance: TORSEMIDE
  5. SILDENAFIL CITRATE 100MG [Suspect]
     Active Substance: SILDENAFIL CITRATE
     Indication: PROSTATE CANCER
     Dosage: 1 PILL
     Route: 048
     Dates: start: 2007, end: 20150615
  6. ALLOPURINOL. [Concomitant]
     Active Substance: ALLOPURINOL
  7. OMEPRAZOLE. [Concomitant]
     Active Substance: OMEPRAZOLE

REACTIONS (2)
  - Seizure [None]
  - Loss of consciousness [None]

NARRATIVE: CASE EVENT DATE: 2011
